FAERS Safety Report 11244508 (Version 1)
Quarter: 2015Q3

REPORT INFORMATION
  Report Type: Spontaneous
  Country: US (occurrence: US)
  Receive Date: 20150707
  Receipt Date: 20150707
  Transmission Date: 20151125
  Serious: Yes (Other)
  Sender: FDA-Public Use
  Company Number: US-GLAXOSMITHKLINE-US2015GSK086929

PATIENT
  Age: 81 Year
  Sex: Female
  Weight: 41.72 kg

DRUGS (10)
  1. TAGAMET [Suspect]
     Active Substance: CIMETIDINE
     Indication: GASTROOESOPHAGEAL REFLUX DISEASE
  2. ZANTAC [Suspect]
     Active Substance: RANITIDINE HYDROCHLORIDE
     Indication: DYSPEPSIA
  3. PRILOSEC [Suspect]
     Active Substance: OMEPRAZOLE MAGNESIUM
     Indication: GASTROOESOPHAGEAL REFLUX DISEASE
     Dosage: UNK, U
  4. SUCRAFATE [Suspect]
     Active Substance: SUCRALFATE
     Indication: PRODUCT USED FOR UNKNOWN INDICATION
     Dosage: UNK, TID
     Route: 065
     Dates: start: 201412
  5. ASPIRIN (BABY) [Concomitant]
     Active Substance: ASPIRIN
  6. ZANTAC [Suspect]
     Active Substance: RANITIDINE HYDROCHLORIDE
     Indication: GASTROOESOPHAGEAL REFLUX DISEASE
     Dosage: 300 MG, BID
     Route: 065
  7. TAGAMET [Suspect]
     Active Substance: CIMETIDINE
     Indication: DYSPEPSIA
     Dosage: UNK, U
     Route: 065
  8. PRILOSEC [Suspect]
     Active Substance: OMEPRAZOLE MAGNESIUM
     Indication: DYSPEPSIA
  9. NEXIUM 24HR [Suspect]
     Active Substance: ESOMEPRAZOLE MAGNESIUM
     Indication: GASTROOESOPHAGEAL REFLUX DISEASE
     Dosage: 22.3 MG, QD
     Route: 048
     Dates: start: 201412
  10. NEXIUM 24HR [Suspect]
     Active Substance: ESOMEPRAZOLE MAGNESIUM
     Indication: DYSPEPSIA

REACTIONS (11)
  - Drug intolerance [Unknown]
  - Drug ineffective [Unknown]
  - Cardiac operation [Recovered/Resolved]
  - Stent placement [Recovered/Resolved]
  - Weight decreased [Unknown]
  - Soft tissue disorder [Recovered/Resolved]
  - Coronary artery bypass [Recovered/Resolved]
  - Gastrointestinal inflammation [Unknown]
  - Pain [Recovered/Resolved]
  - Resection of rectum [Recovered/Resolved]
  - Dyspepsia [Unknown]

NARRATIVE: CASE EVENT DATE: 1998
